FAERS Safety Report 9215141 (Version 1)
Quarter: 2013Q2

REPORT INFORMATION
  Report Type: Spontaneous
  Country: US (occurrence: US)
  Receive Date: 20130405
  Receipt Date: 20130405
  Transmission Date: 20140414
  Serious: Yes (Hospitalization)
  Sender: FDA-Public Use
  Company Number: US-ABBOTT-13P-163-1069662-00

PATIENT
  Age: 82 Year
  Sex: Female
  Weight: 81.72 kg

DRUGS (21)
  1. TRICOR [Suspect]
     Indication: PRODUCT USED FOR UNKNOWN INDICATION
  2. VYTORIN [Concomitant]
     Indication: PRODUCT USED FOR UNKNOWN INDICATION
     Dosage: 10/40
  3. DILTIAZEM CD [Concomitant]
     Indication: HYPERTENSION
     Route: 048
  4. DOXAZOSIN [Concomitant]
     Indication: PRODUCT USED FOR UNKNOWN INDICATION
  5. QUINAPRIL [Concomitant]
     Indication: HYPERTENSION
  6. FOLIC ACID [Concomitant]
     Indication: VITAMIN SUPPLEMENTATION
  7. COUMADIN [Concomitant]
     Indication: ATRIAL FIBRILLATION
     Dosage: VARYING DOSE
  8. METFORMIN [Concomitant]
     Indication: DIABETES MELLITUS
  9. GENUVIA [Concomitant]
     Indication: DIABETES MELLITUS
  10. TRAVATAN [Concomitant]
     Indication: GLAUCOMA
     Route: 047
  11. TORLIA [Concomitant]
     Indication: OSTEOPOROSIS
  12. DIAZEPAM [Concomitant]
     Indication: PRODUCT USED FOR UNKNOWN INDICATION
     Dosage: AT HOUR OF SLEEP AS NEEDED
  13. SPIRIVIA [Concomitant]
     Indication: EMPHYSEMA
  14. ADVIR [Concomitant]
     Indication: PRODUCT USED FOR UNKNOWN INDICATION
     Dosage: 250/500
  15. FUROSEMIDE [Concomitant]
     Indication: PRODUCT USED FOR UNKNOWN INDICATION
  16. VIT D3 [Concomitant]
     Indication: PRODUCT USED FOR UNKNOWN INDICATION
  17. CAL WITH MG AND VIT D [Concomitant]
     Indication: PRODUCT USED FOR UNKNOWN INDICATION
  18. CENTRUM SILVER [Concomitant]
     Indication: PRODUCT USED FOR UNKNOWN INDICATION
  19. TYLENOL [Concomitant]
     Indication: PRODUCT USED FOR UNKNOWN INDICATION
  20. FISH OIL [Concomitant]
     Indication: PRODUCT USED FOR UNKNOWN INDICATION
  21. BIOFREEZE [Concomitant]
     Indication: PRODUCT USED FOR UNKNOWN INDICATION

REACTIONS (1)
  - Hip arthroplasty [Unknown]
